FAERS Safety Report 10592742 (Version 2)
Quarter: 2015Q2

REPORT INFORMATION
  Report Type: Spontaneous
  Country: PE (occurrence: PE)
  Receive Date: 20141119
  Receipt Date: 20150415
  Transmission Date: 20150821
  Serious: Yes (Other)
  Sender: FDA-Public Use
  Company Number: PE-PFIZER INC-2014316655

PATIENT
  Age: 91 Year
  Sex: Male

DRUGS (1)
  1. LYRICA [Suspect]
     Active Substance: PREGABALIN
     Indication: SCIATICA
     Dosage: UNK
     Route: 048
     Dates: end: 201410

REACTIONS (1)
  - Cerebrovascular disorder [Recovered/Resolved]

NARRATIVE: CASE EVENT DATE: 201410
